FAERS Safety Report 14302698 (Version 1)
Quarter: 2017Q4

REPORT INFORMATION
  Report Type: Not Available
  Country: JP (occurrence: JP)
  Receive Date: 20171219
  Receipt Date: 20171219
  Transmission Date: 20180321
  Serious: Yes (Hospitalization)
  Sender: FDA-Public Use
  Company Number: JP-AKORN-74983

PATIENT
  Age: 90 Year
  Sex: Male

DRUGS (1)
  1. ZIOPTAN [Suspect]
     Active Substance: TAFLUPROST

REACTIONS (2)
  - Nasal congestion [Recovered/Resolved]
  - Cataract operation [Unknown]

NARRATIVE: CASE EVENT DATE: 20170605
